FAERS Safety Report 18247211 (Version 3)
Quarter: 2022Q2

REPORT INFORMATION
  Report Type: Spontaneous
  Country: CH (occurrence: CH)
  Receive Date: 20200909
  Receipt Date: 20220504
  Transmission Date: 20220720
  Serious: Yes (Life-Threatening, Hospitalization)
  Sender: FDA-Public Use
  Company Number: CH-SM-2020-15311

PATIENT
  Age: 38 Year
  Sex: Female
  Weight: 66 kg

DRUGS (12)
  1. AMOXICILLIN\CLAVULANATE POTASSIUM [Suspect]
     Active Substance: AMOXICILLIN\CLAVULANATE POTASSIUM
     Route: 041
     Dates: start: 20200717, end: 20200726
  2. PIPERACILLIN AND TAZOBACTAM [Suspect]
     Active Substance: PIPERACILLIN SODIUM\TAZOBACTAM SODIUM
     Route: 041
     Dates: start: 20200727, end: 20200806
  3. METAMIZOLE [Suspect]
     Active Substance: METAMIZOLE
     Dosage: IF NECESSARY. EXTERNAL ANAMNESTIC INFORMATION.
     Route: 048
     Dates: start: 20200701, end: 20200724
  4. QUETIAPINE FUMARATE [Suspect]
     Active Substance: QUETIAPINE FUMARATE
     Route: 048
     Dates: start: 202005
  5. SODIUM PICOSULFATE [Suspect]
     Active Substance: SODIUM PICOSULFATE
     Route: 065
  6. PANTOZOL [Suspect]
     Active Substance: PANTOPRAZOLE SODIUM
     Route: 065
  7. TRAZODONE HYDROCHLORIDE [Suspect]
     Active Substance: TRAZODONE HYDROCHLORIDE
     Dosage: INCREASED TO 150 MG PER DAY SHORTLY BEFORE ADMISSION (26-JUL-2020)
     Route: 065
  8. VITAMINS [Concomitant]
     Active Substance: VITAMINS
     Dates: start: 202005
  9. DUPHALAC [Concomitant]
     Active Substance: LACTULOSE
     Dates: start: 202005
  10. FOLIC ACID [Concomitant]
     Active Substance: FOLIC ACID
     Dates: start: 2018, end: 20200725
  11. LACTITOL [Concomitant]
     Active Substance: LACTITOL
     Dates: start: 202005, end: 20200727
  12. HYDROMORPHONE [Concomitant]
     Active Substance: HYDROMORPHONE
     Dosage: 12 MILLIGRAM DAILY;
     Route: 048
     Dates: start: 20200724, end: 20200726

REACTIONS (3)
  - Pancytopenia [Not Recovered/Not Resolved]
  - Agranulocytosis [Recovered/Resolved]
  - Pancytopenia [Recovered/Resolved]

NARRATIVE: CASE EVENT DATE: 20180201
